FAERS Safety Report 5653948-4 (Version None)
Quarter: 2008Q1

REPORT INFORMATION
  Report Type: 
  Country: None (occurrence: None)
  Receive Date: 20080206
  Receipt Date: 20070920
  Transmission Date: 20080703
  Serious: Yes (Other)
  Sender: FDA-Public Use
  Company Number: US200709005597

PATIENT
  Age: 79 Year
  Sex: Female

DRUGS (1)
  1. EVISTA [Suspect]
     Indication: OSTEOPOROSIS
     Dosage: 60 MG,ORAL
     Route: 048
     Dates: start: 20040101, end: 20070801

REACTIONS (1)
  - EMBOLISM VENOUS [None]
